FAERS Safety Report 14798288 (Version 1)
Quarter: 2018Q2

REPORT INFORMATION
  Report Type: Spontaneous
  Country: DE (occurrence: DE)
  Receive Date: 20180424
  Receipt Date: 20180424
  Transmission Date: 20180711
  Serious: Yes (Other)
  Sender: FDA-Public Use
  Company Number: DE-TORRENT-00008134

PATIENT
  Sex: Female

DRUGS (1)
  1. ARIPIPRAZOL [Suspect]
     Active Substance: ARIPIPRAZOLE
     Indication: PRODUCT USED FOR UNKNOWN INDICATION
     Dosage: 15 MG, UNK
     Route: 065
     Dates: start: 201402

REACTIONS (5)
  - Intestinal obstruction [Unknown]
  - Type 2 diabetes mellitus [Not Recovered/Not Resolved]
  - Gallbladder disorder [Unknown]
  - Pancreatitis [Recovered/Resolved]
  - Splenic vein thrombosis [Unknown]

NARRATIVE: CASE EVENT DATE: 2014
